FAERS Safety Report 10181516 (Version 2)
Quarter: 2014Q2

REPORT INFORMATION
  Report Type: Spontaneous
  Country: US (occurrence: US)
  Receive Date: 20140519
  Receipt Date: 20140619
  Transmission Date: 20141212
  Serious: Yes (Other)
  Sender: FDA-Public Use
  Company Number: US-PFIZER INC-2014133371

PATIENT
  Age: 63 Year
  Sex: Female

DRUGS (13)
  1. XELJANZ [Suspect]
     Indication: RHEUMATOID ARTHRITIS
     Dosage: 5 MG, 2X/DAY
     Route: 048
     Dates: start: 201308
  2. XELJANZ [Suspect]
     Dosage: UNK
  3. BYDUREON [Concomitant]
     Dosage: UNK
  4. PRAVASTATIN [Concomitant]
     Dosage: UNK
  5. METHOTREXATE [Concomitant]
     Dosage: UNK
  6. OMEPRAZOLE [Concomitant]
     Dosage: UNK
  7. METFORMIN [Concomitant]
     Dosage: UNK
  8. ASA [Concomitant]
     Dosage: UNK
  9. GLUCOSAMINE-CHONDROITIN [Concomitant]
     Dosage: UNK
  10. TYLENOL ARTHRITIS [Concomitant]
     Dosage: UNK
  11. VIT B12 [Concomitant]
     Dosage: UNK
  12. VITAMIN C [Concomitant]
     Dosage: UNK
  13. FISH OIL [Concomitant]

REACTIONS (3)
  - Rheumatoid arthritis [Not Recovered/Not Resolved]
  - Activities of daily living impaired [Not Recovered/Not Resolved]
  - Rotator cuff syndrome [Not Recovered/Not Resolved]
